FAERS Safety Report 6113662-8 (Version None)
Quarter: 2009Q1

REPORT INFORMATION
  Report Type: 
  Country: None (occurrence: None)
  Receive Date: 20090312
  Receipt Date: 20090227
  Transmission Date: 20090719
  Serious: Yes (Hospitalization)
  Sender: FDA-Public Use
  Company Number: PHHY2009US07257

PATIENT

DRUGS (7)
  1. CYCLOSPORINE [Suspect]
     Indication: JUVENILE ARTHRITIS
     Dosage: 50 MG, QD
     Dates: start: 20080901
  2. PREDNISONE [Concomitant]
     Dosage: 10 MG, BID
     Route: 058
     Dates: start: 20061201
  3. METHOTREXATE [Concomitant]
     Dosage: 20 MG, QW
     Route: 042
     Dates: start: 20070301
  4. REMICADE [Concomitant]
     Dosage: 200 MG, ONCE A MONTH
     Route: 042
     Dates: start: 20081210
  5. METHYLPREDNISOLONE 4MG TAB [Concomitant]
     Indication: JUVENILE ARTHRITIS
     Dosage: 1 G, MONTHLY AND AS NEEDED
     Dates: start: 20081210
  6. FOLIC ACID [Concomitant]
     Dosage: 1 MG, QD
     Dates: start: 20061201
  7. OSCAL [Concomitant]
     Dosage: 250 MG, QD
     Dates: start: 20070201

REACTIONS (4)
  - ABDOMINAL PAIN [None]
  - INAPPROPRIATE SCHEDULE OF DRUG ADMINISTRATION [None]
  - PYREXIA [None]
  - WHITE BLOOD CELL COUNT DECREASED [None]
